FAERS Safety Report 16238425 (Version 1)
Quarter: 2019Q2

REPORT INFORMATION
  Report Type: Spontaneous
  Country: US (occurrence: US)
  Receive Date: 20190321
  Receipt Date: 20190321
  Transmission Date: 20190711
  Serious: No
  Sender: FDA-Public Use
  Company Number: None

PATIENT
  Age: 60 Year
  Sex: Female
  Weight: 122.47 kg

DRUGS (1)
  1. BENLYSTA [Suspect]
     Active Substance: BELIMUMAB
     Indication: SYSTEMIC LUPUS ERYTHEMATOSUS
     Dosage: ?          OTHER FREQUENCY:OVER1HRWKS2,4;?
     Route: 042
     Dates: start: 201810

REACTIONS (4)
  - Lung disorder [None]
  - Systemic lupus erythematosus [None]
  - Dyspnoea [None]
  - Cardiac disorder [None]
